FAERS Safety Report 8817739 (Version 2)
Quarter: 2012Q4

REPORT INFORMATION
  Report Type: 
  Country: US (occurrence: US)
  Receive Date: 20121002
  Receipt Date: 20121203
  Transmission Date: 20130627
  Serious: No
  Sender: FDA-Public Use
  Company Number: US-009507513-1209USA004495

PATIENT
  Sex: Female

DRUGS (3)
  1. PEGINTRON [Suspect]
     Indication: HEPATITIS C
     Dosage: UNK
     Dates: start: 20120606
  2. RIBAVIRIN [Suspect]
     Indication: HEPATITIS C
     Dosage: UNK
     Dates: start: 20120606
  3. VICTRELIS [Suspect]
     Indication: HEPATITIS C
     Dosage: UNK
     Dates: start: 20120704

REACTIONS (16)
  - Panic reaction [Unknown]
  - Nausea [Unknown]
  - Depressed mood [Unknown]
  - Mood altered [Unknown]
  - Fatigue [Unknown]
  - Anaemia [Unknown]
  - Menometrorrhagia [Unknown]
  - Drug ineffective [Unknown]
  - Therapeutic response decreased [Unknown]
  - Fatigue [Unknown]
  - Pain [Unknown]
  - Dysgeusia [Unknown]
  - Photosensitivity reaction [Unknown]
  - Anaemia [Unknown]
  - Haemorrhage [Unknown]
  - Arthritis [Unknown]
